FAERS Safety Report 4984355-5 (Version None)
Quarter: 2006Q2

REPORT INFORMATION
  Report Type: 
  Country: None (occurrence: None)
  Receive Date: 20060420
  Receipt Date: 20060411
  Transmission Date: 20061013
  Serious: Yes (Other)
  Sender: FDA-Public Use
  Company Number: 2006050381

PATIENT
  Age: 74 Year
  Sex: Male

DRUGS (2)
  1. NORVASC [Suspect]
     Indication: HYPERTENSION
     Dosage: 5 MG QD, ORAL
     Route: 048
     Dates: end: 20060328
  2. TICLOPIDINE HCL [Suspect]
     Indication: HYPERURICAEMIA
     Dosage: 100 MG, ORAL
     Route: 048

REACTIONS (1)
  - BLOOD CREATINE PHOSPHOKINASE INCREASED [None]
